FAERS Safety Report 21347002 (Version 1)
Quarter: 2022Q3

REPORT INFORMATION
  Report Type: Spontaneous
  Country: US (occurrence: US)
  Receive Date: 20220918
  Receipt Date: 20220918
  Transmission Date: 20221027
  Serious: Yes (Hospitalization, Other)
  Sender: FDA-Public Use
  Company Number: US-JNJFOC-20220914188

PATIENT
  Age: 59 Year
  Sex: Female

DRUGS (7)
  1. VELETRI [Suspect]
     Active Substance: EPOPROSTENOL
     Indication: Product used for unknown indication
     Dosage: VELETRI AFTER TRYING TO INCREASE TO RATE 72 ML/24H WITH DOSE 23.8 NG/KG.
     Route: 042
  2. VELETRI [Suspect]
     Active Substance: EPOPROSTENOL
     Dosage: PATIENT DECREASED BACK TO RATE 70 ML/24H DOSE 23.2NG/KG.
     Route: 042
  3. OFEV [Suspect]
     Active Substance: NINTEDANIB
     Indication: Idiopathic pulmonary fibrosis
     Route: 048
     Dates: start: 20211221
  4. OFEV [Suspect]
     Active Substance: NINTEDANIB
     Route: 048
  5. OFEV [Suspect]
     Active Substance: NINTEDANIB
     Route: 048
     Dates: start: 20211222
  6. OXYGEN [Concomitant]
     Active Substance: OXYGEN
  7. TREPROSTINIL [Concomitant]
     Active Substance: TREPROSTINIL

REACTIONS (18)
  - Pulmonary hypertension [Recovering/Resolving]
  - Pneumonia [Unknown]
  - Infection [Unknown]
  - Therapy change [Unknown]
  - Diarrhoea [Unknown]
  - Pyrexia [Unknown]
  - Nausea [Not Recovered/Not Resolved]
  - Vomiting [Recovered/Resolved]
  - Nasal congestion [Unknown]
  - Sinusitis [Unknown]
  - Peripheral swelling [Unknown]
  - Pain in extremity [Recovered/Resolved]
  - Abdominal pain upper [Unknown]
  - Catheter site pruritus [Unknown]
  - Weight decreased [Unknown]
  - Headache [Unknown]
  - Feeding disorder [Unknown]
  - Dyspnoea exertional [Unknown]

NARRATIVE: CASE EVENT DATE: 20220213
